FAERS Safety Report 18889695 (Version 1)
Quarter: 2021Q1

REPORT INFORMATION
  Report Type: Spontaneous
  Country: US (occurrence: US)
  Receive Date: 20210213
  Receipt Date: 20210213
  Transmission Date: 20210420
  Serious: No
  Sender: FDA-Public Use
  Company Number: US-TEVA-2021-US-1877687

PATIENT
  Age: 86 Year
  Sex: Male

DRUGS (2)
  1. PENICILLIN [Concomitant]
     Active Substance: PENICILLIN
  2. WARFARIN SODIUM TEVA [Suspect]
     Active Substance: WARFARIN SODIUM
     Dosage: 2.5 MILLIGRAM DAILY;
     Dates: start: 202011

REACTIONS (9)
  - Dizziness [Unknown]
  - Bowel movement irregularity [Not Recovered/Not Resolved]
  - Pruritus [Recovering/Resolving]
  - Swelling [Recovering/Resolving]
  - Skin disorder [Recovering/Resolving]
  - Hypoacusis [Unknown]
  - Rash macular [Not Recovered/Not Resolved]
  - Constipation [Not Recovered/Not Resolved]
  - Rash [Recovering/Resolving]

NARRATIVE: CASE EVENT DATE: 202011
